FAERS Safety Report 9159226 (Version 1)
Quarter: 2013Q1

REPORT INFORMATION
  Report Type: Spontaneous
  Country: US (occurrence: None)
  Receive Date: 20130311
  Receipt Date: 20130311
  Transmission Date: 20140127
  Serious: Yes (Death)
  Sender: FDA-Public Use
  Company Number: B0872976A

PATIENT
  Age: 5 Month
  Sex: 0

DRUGS (3)
  1. MELPHALAN [Suspect]
     Indication: BONE MARROW TRANSPLANT
  2. BUSULPHAN [Suspect]
     Indication: BONE MARROW TRANSPLANT
  3. UNSPECIFIED INGREDIENT [Suspect]
     Indication: BONE MARROW TRANSPLANT

REACTIONS (2)
  - Venoocclusive liver disease [None]
  - Pulmonary haemorrhage [None]
